FAERS Safety Report 5015777-4 (Version None)
Quarter: 2006Q2

REPORT INFORMATION
  Report Type: 
  Country: None (occurrence: None)
  Receive Date: 20060525
  Receipt Date: 20060516
  Transmission Date: 20061013
  Serious: Yes (Hospitalization)
  Sender: FDA-Public Use
  Company Number: 2006-05-1374

PATIENT
  Age: 67 Year
  Sex: Male

DRUGS (5)
  1. PEG-INTRON [Suspect]
     Indication: HEPATITIS C
     Dosage: 80 MCG QW SUBCUTANEOUS
     Route: 058
     Dates: start: 20050120, end: 20051222
  2. INTRON A [Suspect]
     Indication: HEPATITIS C
     Dosage: INTRAMUSCULAR
     Route: 030
     Dates: start: 20051201, end: 20060101
  3. REBETOL [Suspect]
     Indication: HEPATITIS C
     Dosage: 600-UNK*MG ORAL
     Route: 048
     Dates: start: 20050120, end: 20051222
  4. REBETOL [Suspect]
     Indication: HEPATITIS C
     Dosage: 600-UNK*MG ORAL
     Route: 048
     Dates: start: 20050120, end: 20060101
  5. REBETOL [Suspect]
     Indication: HEPATITIS C
     Dosage: 600-UNK*MG ORAL
     Route: 048
     Dates: start: 20051201, end: 20060101

REACTIONS (1)
  - POLYMYOSITIS [None]
